FAERS Safety Report 4551330-4 (Version None)
Quarter: 2005Q1

REPORT INFORMATION
  Report Type: 
  Country: None (occurrence: None)
  Receive Date: 20050110
  Receipt Date: 20041228
  Transmission Date: 20050727
  Serious: Yes (Hospitalization, Other)
  Sender: FDA-Public Use
  Company Number: HQWYE482116NOV04

PATIENT
  Age: 71 Year
  Sex: Male

DRUGS (5)
  1. AMIODARONE HCL [Suspect]
     Indication: ATRIAL FIBRILLATION
     Dosage: 200 MG 1X PER 1 DAY
     Route: 048
     Dates: start: 20040916, end: 20040928
  2. CARVEDILOL [Concomitant]
  3. DIGOXIN [Concomitant]
  4. HANP (CARPERITIDE) [Concomitant]
  5. WARFARIN SODIUM [Concomitant]

REACTIONS (9)
  - BLOOD CHLORIDE DECREASED [None]
  - BLOOD UREA INCREASED [None]
  - DECREASED APPETITE [None]
  - DEHYDRATION [None]
  - FLUID INTAKE REDUCED [None]
  - GASTROINTESTINAL EROSION [None]
  - HAEMATOCRIT DECREASED [None]
  - HAEMOGLOBIN DECREASED [None]
  - ORAL INTAKE REDUCED [None]
